FAERS Safety Report 10565595 (Version 3)
Quarter: 2014Q4

REPORT INFORMATION
  Report Type: Spontaneous
  Country: DE (occurrence: DE)
  Receive Date: 20141105
  Receipt Date: 20141112
  Transmission Date: 20150529
  Serious: Yes (Other)
  Sender: FDA-Public Use
  Company Number: DE-JNJFOC-20140926062

PATIENT
  Age: 47 Year
  Sex: Female
  Weight: 77 kg

DRUGS (14)
  1. XARELTO [Suspect]
     Active Substance: RIVAROXABAN
     Indication: EMBOLISM VENOUS
     Route: 048
  2. YAZ [Suspect]
     Active Substance: DROSPIRENONE\ETHINYL ESTRADIOL
     Indication: MIGRAINE
     Route: 048
     Dates: start: 201406
  3. YAZ [Suspect]
     Active Substance: DROSPIRENONE\ETHINYL ESTRADIOL
     Indication: MIGRAINE
     Route: 048
     Dates: start: 201301, end: 20131114
  4. MIRENA [Suspect]
     Active Substance: LEVONORGESTREL
     Indication: HAEMORRHAGE
     Route: 015
     Dates: start: 20140610, end: 20140627
  5. MIRENA [Suspect]
     Active Substance: LEVONORGESTREL
     Indication: HAEMORRHAGE
     Route: 015
     Dates: start: 20131209, end: 20140306
  6. MIRENA [Suspect]
     Active Substance: LEVONORGESTREL
     Indication: CONTRACEPTION
     Route: 015
     Dates: start: 20131209, end: 20140306
  7. YAZ [Suspect]
     Active Substance: DROSPIRENONE\ETHINYL ESTRADIOL
     Indication: HAEMORRHAGE
     Route: 048
     Dates: start: 201406
  8. XARELTO [Suspect]
     Active Substance: RIVAROXABAN
     Indication: EMBOLISM VENOUS
     Route: 048
     Dates: start: 20131121
  9. XARELTO [Suspect]
     Active Substance: RIVAROXABAN
     Indication: THROMBOSIS
     Route: 048
     Dates: start: 20131121
  10. YAZ [Suspect]
     Active Substance: DROSPIRENONE\ETHINYL ESTRADIOL
     Indication: CONTRACEPTION
     Route: 048
     Dates: start: 201301, end: 20131114
  11. YAZ [Suspect]
     Active Substance: DROSPIRENONE\ETHINYL ESTRADIOL
     Indication: CONTRACEPTION
     Route: 048
     Dates: start: 201406
  12. MIRENA [Suspect]
     Active Substance: LEVONORGESTREL
     Indication: CONTRACEPTION
     Route: 015
     Dates: start: 20140610, end: 20140627
  13. XARELTO [Suspect]
     Active Substance: RIVAROXABAN
     Indication: THROMBOSIS
     Route: 048
  14. YAZ [Suspect]
     Active Substance: DROSPIRENONE\ETHINYL ESTRADIOL
     Indication: HAEMORRHAGE
     Route: 048
     Dates: start: 201301, end: 20131114

REACTIONS (10)
  - Deep vein thrombosis [Unknown]
  - Menorrhagia [Not Recovered/Not Resolved]
  - Headache [Unknown]
  - Device expulsion [Unknown]
  - Uterine haemorrhage [Not Recovered/Not Resolved]
  - Device expulsion [Unknown]
  - Medication error [Unknown]
  - Abnormal withdrawal bleeding [Unknown]
  - Heart rate increased [Unknown]
  - Incorrect dose administered [Unknown]

NARRATIVE: CASE EVENT DATE: 20131114
